FAERS Safety Report 19489740 (Version 1)
Quarter: 2021Q3

REPORT INFORMATION
  Report Type: Report from Study
  Country: NO (occurrence: NO)
  Receive Date: 20210704
  Receipt Date: 20210704
  Transmission Date: 20211014
  Serious: Yes (Hospitalization)
  Sender: FDA-Public Use
  Company Number: NO-ROCHE-2211321

PATIENT
  Age: 37 Year
  Sex: Male

DRUGS (8)
  1. TOCILIZUMAB. [Suspect]
     Active Substance: TOCILIZUMAB
     Indication: MYOCARDIAL INFARCTION
     Route: 042
     Dates: start: 20181011
  2. ASPRIN [Concomitant]
     Active Substance: ASPIRIN
  3. MORFIN [Concomitant]
     Route: 042
  4. ATORVASTATIN [Concomitant]
     Active Substance: ATORVASTATIN
  5. PARACETAMOL/CODEINE [Concomitant]
     Active Substance: ACETAMINOPHEN\CODEINE PHOSPHATE
     Dosage: DOSE: 800/60 MG
  6. METOPROLOL. [Concomitant]
     Active Substance: METOPROLOL
  7. DEKSKLORFENIRAMIN [Concomitant]
     Route: 042
  8. HYDROKORTISON [Concomitant]
     Route: 042

REACTIONS (1)
  - Toothache [Recovered/Resolved]

NARRATIVE: CASE EVENT DATE: 20181016
